FAERS Safety Report 24301975 (Version 1)
Quarter: 2024Q3

REPORT INFORMATION
  Report Type: Spontaneous
  Country: US (occurrence: None)
  Receive Date: 20240909
  Receipt Date: 20240909
  Transmission Date: 20241017
  Serious: No
  Sender: Public
  Company Number: None

PATIENT

DRUGS (1)
  1. ADDERALL [Suspect]
     Active Substance: AMPHETAMINE ASPARTATE\AMPHETAMINE SULFATE\DEXTROAMPHETAMINE SACCHARATE\DEXTROAMPHETAMINE SULFATE

REACTIONS (10)
  - Product availability issue [None]
  - Withdrawal syndrome [None]
  - Fatigue [None]
  - Discomfort [None]
  - Somnolence [None]
  - Emotional disorder [None]
  - Economic problem [None]
  - Therapy interrupted [None]
  - Impaired quality of life [None]
  - Educational problem [None]
